FAERS Safety Report 9690860 (Version 2)
Quarter: 2014Q1

REPORT INFORMATION
  Report Type: Spontaneous
  Country: IT (occurrence: IT)
  Receive Date: 20131115
  Receipt Date: 20140113
  Transmission Date: 20141002
  Serious: Yes (Hospitalization, Other)
  Sender: FDA-Public Use
  Company Number: IT-GE HEALTHCARE MEDICAL DIAGNOSTICS-VISP-PR-1311S-0891

PATIENT
  Sex: Male

DRUGS (6)
  1. VISIPAQUE [Suspect]
     Indication: DIVERTICULUM
     Dosage: DOSE NOT REPORTED
     Route: 042
     Dates: start: 20131016, end: 20131016
  2. VISIPAQUE [Suspect]
     Indication: DIAGNOSTIC PROCEDURE
  3. OKI [Suspect]
     Indication: PHARYNGITIS
     Route: 048
     Dates: start: 20131010, end: 20131012
  4. ZITROMAX [Suspect]
     Indication: PHARYNGITIS
     Route: 048
     Dates: start: 20131010, end: 20131012
  5. OMEPRAZOLE [Concomitant]
  6. RAMIPRIL HYDROCHLOROTHIAZIDE [Concomitant]

REACTIONS (4)
  - Toxic skin eruption [Recovering/Resolving]
  - Alanine aminotransferase increased [Recovered/Resolved]
  - Aspartate aminotransferase increased [Recovered/Resolved]
  - Gamma-glutamyltransferase increased [Recovered/Resolved]
